FAERS Safety Report 24852975 (Version 3)
Quarter: 2025Q3

REPORT INFORMATION
  Report Type: Spontaneous
  Country: US (occurrence: US)
  Receive Date: 20250116
  Receipt Date: 20250810
  Transmission Date: 20251020
  Serious: No
  Sender: ALEXION PHARMACEUTICALS
  Company Number: US-AstraZeneca-CH-00783851AP

PATIENT
  Sex: Male

DRUGS (1)
  1. BREZTRI [Suspect]
     Active Substance: BUDESONIDE\FORMOTEROL\GLYCOPYRROLATE

REACTIONS (6)
  - Device malfunction [Unknown]
  - Chronic obstructive pulmonary disease [Unknown]
  - Drug dose omission by device [Unknown]
  - Visual impairment [Unknown]
  - Heart rate increased [Unknown]
  - Rhinovirus infection [Unknown]
